FAERS Safety Report 14492665 (Version 1)
Quarter: 2018Q1

REPORT INFORMATION
  Report Type: Spontaneous
  Country: US (occurrence: US)
  Receive Date: 20180206
  Receipt Date: 20180206
  Transmission Date: 20180509
  Serious: No
  Sender: FDA-Public Use
  Company Number: US-JNJFOC-20180110926

PATIENT
  Sex: Male

DRUGS (13)
  1. BENADRYL [Suspect]
     Active Substance: DIPHENHYDRAMINE HYDROCHLORIDE
     Indication: PRURITUS
     Dosage: ONCE A DAY AS NEEDED
     Route: 048
     Dates: start: 2017
  2. TREMFYA [Concomitant]
     Active Substance: GUSELKUMAB
     Indication: PSORIASIS
     Dosage: EVERY 8 WEEKS
     Route: 058
     Dates: start: 201708
  3. HYDROXYZINE [Concomitant]
     Active Substance: HYDROXYZINE HYDROCHLORIDE
     Indication: SLEEP DISORDER
     Dosage: AS NEEDED
     Route: 048
     Dates: start: 2016
  4. BABY ASPIRIN [Concomitant]
     Active Substance: ASPIRIN
     Indication: ANTICOAGULANT THERAPY
     Route: 065
     Dates: start: 2015
  5. VITAMIN D [Concomitant]
     Active Substance: CHOLECALCIFEROL
     Indication: NUTRITIONAL SUPPLEMENTATION
     Route: 048
     Dates: start: 2017
  6. SYNTHROID [Concomitant]
     Active Substance: LEVOTHYROXINE SODIUM
     Indication: HYPOTHYROIDISM
     Route: 048
     Dates: start: 1996
  7. CRESTOR [Concomitant]
     Active Substance: ROSUVASTATIN CALCIUM
     Indication: BLOOD CHOLESTEROL
     Route: 048
     Dates: start: 2017
  8. LUNESTA [Concomitant]
     Active Substance: ESZOPICLONE
     Indication: SLEEP DISORDER
     Route: 048
     Dates: start: 2013
  9. BENADRYL [Suspect]
     Active Substance: DIPHENHYDRAMINE HYDROCHLORIDE
     Indication: SLEEP DISORDER
     Dosage: ONCE A DAY AS NEEDED
     Route: 048
     Dates: start: 2017
  10. FISH OIL [Concomitant]
     Active Substance: FISH OIL
     Indication: NUTRITIONAL SUPPLEMENTATION
     Route: 048
     Dates: start: 2012
  11. ZYRTEC [Suspect]
     Active Substance: CETIRIZINE HYDROCHLORIDE
     Route: 048
  12. ZYRTEC [Suspect]
     Active Substance: CETIRIZINE HYDROCHLORIDE
     Indication: PRURITUS
     Dosage: ONCE A DAY AS NEEDED
     Route: 048
     Dates: start: 2017
  13. VITAMIN C [Concomitant]
     Active Substance: ASCORBIC ACID
     Indication: NUTRITIONAL SUPPLEMENTATION
     Route: 048
     Dates: start: 2012

REACTIONS (1)
  - Product use in unapproved indication [Unknown]
